FAERS Safety Report 25683365 (Version 1)
Quarter: 2025Q3

REPORT INFORMATION
  Report Type: Spontaneous
  Country: US (occurrence: US)
  Receive Date: 20250814
  Receipt Date: 20250814
  Transmission Date: 20251020
  Serious: No
  Sender: SOLVENTUM US OPCO LLC
  Company Number: US-3M-2024-US-052484

PATIENT
  Sex: Female

DRUGS (1)
  1. PERIDEX [Suspect]
     Active Substance: CHLORHEXIDINE GLUCONATE
     Indication: Dental care
     Route: 048
     Dates: start: 20240913, end: 20240919

REACTIONS (2)
  - Dry mouth [Not Recovered/Not Resolved]
  - Tongue discolouration [Not Recovered/Not Resolved]

NARRATIVE: CASE EVENT DATE: 20240915
